FAERS Safety Report 5015181-9 (Version None)
Quarter: 2006Q2

REPORT INFORMATION
  Report Type: 
  Country: None (occurrence: None)
  Receive Date: 20060425
  Receipt Date: 20060209
  Transmission Date: 20061013
  Serious: No
  Sender: FDA-Public Use
  Company Number: 222008

PATIENT
  Age: 10 Year
  Sex: Male

DRUGS (8)
  1. XOLAIR [Suspect]
     Indication: ASTHMA
     Dosage: 300 MG, Q4W, SUBCUTANEOUS
     Route: 058
     Dates: start: 20051102
  2. CONCERTA [Concomitant]
  3. SINGULAIR [Concomitant]
  4. ADVAIR DISKUS 100/50 [Concomitant]
  5. ZYRTEC [Concomitant]
  6. MAXAIR [Concomitant]
  7. EPIPEN (EPINEPHRINE) [Concomitant]
  8. QVAR 40 [Concomitant]

REACTIONS (1)
  - PERIPHERAL COLDNESS [None]
